FAERS Safety Report 22235550 (Version 1)
Quarter: 2023Q2

REPORT INFORMATION
  Report Type: Spontaneous
  Country: None (occurrence: CA)
  Receive Date: 20230420
  Receipt Date: 20230420
  Transmission Date: 20230721
  Serious: Yes (Other)
  Sender: FDA-Public Use
  Company Number: CA-Ascend Therapeutics US, LLC-2140606

PATIENT
  Age: 60 Year
  Sex: Female

DRUGS (20)
  1. ESTROGEL [Suspect]
     Active Substance: ESTRADIOL
     Indication: Product used for unknown indication
     Route: 065
  2. ESTROGEL [Suspect]
     Active Substance: ESTRADIOL
     Route: 065
  3. SINGULAIR [Concomitant]
     Active Substance: MONTELUKAST SODIUM
     Route: 065
  4. ALBUTEROL [Concomitant]
     Active Substance: ALBUTEROL
     Route: 065
  5. AMOXICILLIN [Concomitant]
     Active Substance: AMOXICILLIN
     Route: 065
  6. ANUGESIC HC(HYDROCORTISONE ACETATE, PRAMOCAINE HYDROCHLORIDE, ZINC SUL [Concomitant]
     Route: 065
  7. BREO ELLIPTA [Concomitant]
     Active Substance: FLUTICASONE FUROATE\VILANTEROL TRIFENATATE
     Route: 065
  8. COLACE [Concomitant]
     Active Substance: DOCUSATE SODIUM
     Route: 065
  9. CORTIMENT(BUDESONIDE) [Concomitant]
     Route: 065
  10. ESOMEPRAZOLE(ESOMEPRAZOLE) [Concomitant]
     Route: 065
  11. FLONASE [Concomitant]
     Active Substance: FLUTICASONE PROPIONATE
     Route: 065
  12. FLUCONAZOLE [Concomitant]
     Active Substance: FLUCONAZOLE
     Route: 065
  13. FORMOTEROL(FORMOTEROL) [Concomitant]
     Route: 065
  14. IPRATROPIUM(IPRATROPIUM) [Concomitant]
     Route: 065
  15. NYSTATIN [Concomitant]
     Active Substance: NYSTATIN
     Route: 065
  16. OXYCODONE [Concomitant]
     Active Substance: OXYCODONE
     Route: 065
  17. OXYNEO(OXYCODONE HYDROCHLORIDE) [Concomitant]
     Route: 065
  18. PANTOPRAZOLE(PANTOPRAZOLE) [Concomitant]
     Route: 065
  19. PLANTAGO OVATA(PLANTAGO OVATA) [Concomitant]
     Route: 065
  20. CLARITHROMYCIN [Concomitant]
     Active Substance: CLARITHROMYCIN
     Route: 065

REACTIONS (36)
  - Asthma [Unknown]
  - Candida infection [Unknown]
  - Chest discomfort [Unknown]
  - Chronic sinusitis [Unknown]
  - Cough [Unknown]
  - Deep vein thrombosis [Unknown]
  - Diastolic dysfunction [Unknown]
  - Disease recurrence [Unknown]
  - Diverticulum [Unknown]
  - Dyspnoea [Unknown]
  - Dyspnoea exertional [Unknown]
  - Eczema [Unknown]
  - Embolism venous [Unknown]
  - Emphysema [Unknown]
  - Female genital tract fistula [Unknown]
  - Fungal infection [Unknown]
  - Gastrooesophageal reflux disease [Unknown]
  - Hiatus hernia [Unknown]
  - Hysterectomy [Unknown]
  - Iron deficiency anaemia [Unknown]
  - Lower respiratory tract infection [Unknown]
  - Nasal polyps [Unknown]
  - Obstructive airways disorder [Unknown]
  - Oedema peripheral [Unknown]
  - Osteoarthritis [Unknown]
  - Osteoporosis [Unknown]
  - Pulmonary embolism [Unknown]
  - Respiratory symptom [Unknown]
  - Salpingo-oophorectomy unilateral [Unknown]
  - Sinusitis [Unknown]
  - Sinusitis fungal [Unknown]
  - Sleep apnoea syndrome [Unknown]
  - Sputum increased [Unknown]
  - Tricuspid valve incompetence [Unknown]
  - Wheezing [Unknown]
  - Weight increased [Unknown]
